FAERS Safety Report 6255781-1 (Version None)
Quarter: 2009Q3

REPORT INFORMATION
  Report Type: 
  Country: None (occurrence: None)
  Receive Date: 20090703
  Receipt Date: 20090629
  Transmission Date: 20100115
  Serious: Yes (Other)
  Sender: FDA-Public Use
  Company Number: US-JNJCH-2009017907

PATIENT
  Age: 60 Year
  Sex: Female
  Weight: 50.8 kg

DRUGS (2)
  1. DESITIN CREAMY DIAPER RASH [Suspect]
     Indication: SKIN IRRITATION
     Dosage: TEXT:^QUARTER SIZED^ AMOUNT 2 X A DAY
     Route: 061
     Dates: start: 20090606, end: 20090613
  2. VICODIN [Concomitant]
     Indication: PAIN
     Dosage: TEXT:3 X A DAY
     Route: 065

REACTIONS (2)
  - APPLICATION SITE VESICLES [None]
  - OFF LABEL USE [None]
